FAERS Safety Report 11626893 (Version 1)
Quarter: 2015Q4

REPORT INFORMATION
  Report Type: Spontaneous
  Country: US (occurrence: US)
  Receive Date: 20151013
  Receipt Date: 20151013
  Transmission Date: 20160304
  Serious: Yes (Other)
  Sender: FDA-Public Use
  Company Number: US-HORIZON-VIM-0038-2014

PATIENT
  Age: 86 Year
  Sex: Female

DRUGS (8)
  1. AMITIZA [Concomitant]
     Active Substance: LUBIPROSTONE
     Indication: CONSTIPATION
  2. SIMVASTATIN. [Concomitant]
     Active Substance: SIMVASTATIN
     Indication: BLOOD CHOLESTEROL ABNORMAL
  3. ATENOLOL. [Concomitant]
     Active Substance: ATENOLOL
     Indication: HYPERTENSION
  4. VIMOVO [Suspect]
     Active Substance: ESOMEPRAZOLE MAGNESIUM\NAPROXEN
     Indication: PAIN
     Dosage: 500/20 MG DAILY
     Route: 048
     Dates: start: 20110308
  5. TRIAMTERENE. [Concomitant]
     Active Substance: TRIAMTERENE
     Indication: OEDEMA
  6. SYMBICORT [Suspect]
     Active Substance: BUDESONIDE\FORMOTEROL FUMARATE DIHYDRATE
     Indication: CHRONIC OBSTRUCTIVE PULMONARY DISEASE
     Dosage: 320 ?G TWICE DAILY
     Route: 055
     Dates: start: 2008
  7. TESSALON [Concomitant]
     Active Substance: BENZONATATE
  8. DARVOCET [Concomitant]
     Active Substance: ACETAMINOPHEN\PROPOXYPHENE HYDROCHLORIDE
     Indication: PAIN

REACTIONS (10)
  - Cough [Not Recovered/Not Resolved]
  - Asthma [Unknown]
  - Dyspnoea [Unknown]
  - Bronchospasm [Not Recovered/Not Resolved]
  - Dyspnoea [Not Recovered/Not Resolved]
  - Fatigue [Unknown]
  - Chronic obstructive pulmonary disease [Unknown]
  - Nasopharyngitis [Unknown]
  - Pneumonia [Unknown]
  - Constipation [Unknown]

NARRATIVE: CASE EVENT DATE: 2011
